FAERS Safety Report 9307766 (Version 1)
Quarter: 2013Q2

REPORT INFORMATION
  Report Type: Report from Study
  Country: US (occurrence: US)
  Receive Date: 20130524
  Receipt Date: 20130524
  Transmission Date: 20140414
  Serious: Yes (Other)
  Sender: FDA-Public Use
  Company Number: US-BAYER-2011-052600

PATIENT
  Age: 70 Year
  Sex: Female

DRUGS (13)
  1. EXTAVIA [Suspect]
     Indication: MULTIPLE SCLEROSIS
     Dosage: 0.062 MG, UNK
     Route: 058
     Dates: start: 20110228
  2. EXTAVIA [Suspect]
     Indication: MULTIPLE SCLEROSIS
     Dosage: 1 ML, QOD
     Route: 058
     Dates: start: 201202
  3. EXTAVIA [Suspect]
     Indication: MULTIPLE SCLEROSIS
     Dosage: 0.25 MG, QOD
     Route: 058
     Dates: start: 20110301
  4. VICODIN [Concomitant]
  5. ASPIRIN [Concomitant]
     Dosage: 81 MG, UNK
  6. LYRICA [Concomitant]
  7. ZANAFLEX [Concomitant]
  8. FLEXERIL [Concomitant]
     Dosage: UNK
  9. CALCIUM [Concomitant]
  10. MORPHINE [Concomitant]
  11. NORCO [Concomitant]
     Dosage: UNK
     Dates: start: 20111019
  12. SCALPICIN [HYDROCORTISONE,MENTHOL] [Concomitant]
     Indication: PSORIASIS
     Dosage: UNK
  13. EFFEXOR [Concomitant]

REACTIONS (17)
  - Patella fracture [Not Recovered/Not Resolved]
  - Fall [Not Recovered/Not Resolved]
  - Thrombosis [None]
  - Osteoporosis [Recovering/Resolving]
  - Osteoarthritis [Not Recovered/Not Resolved]
  - Arthritis [Not Recovered/Not Resolved]
  - Pain [Not Recovered/Not Resolved]
  - General physical condition abnormal [Recovering/Resolving]
  - Hypoaesthesia [Not Recovered/Not Resolved]
  - Musculoskeletal pain [Not Recovered/Not Resolved]
  - Mobility decreased [Not Recovered/Not Resolved]
  - Arthropathy [Not Recovered/Not Resolved]
  - Depression [None]
  - Haemorrhage [None]
  - Injection site haemorrhage [Recovered/Resolved]
  - Pruritus [Not Recovered/Not Resolved]
  - Fatigue [Not Recovered/Not Resolved]
